FAERS Safety Report 19205566 (Version 2)
Quarter: 2021Q2

REPORT INFORMATION
  Report Type: Spontaneous
  Country: US (occurrence: US)
  Receive Date: 20210503
  Receipt Date: 20210519
  Transmission Date: 20210717
  Serious: Yes (Hospitalization)
  Sender: FDA-Public Use
  Company Number: US-ASTRAZENECA-2021A369046

PATIENT
  Sex: Female
  Weight: 48.1 kg

DRUGS (3)
  1. VENTOLIN [Concomitant]
     Active Substance: ALBUTEROL SULFATE
     Indication: WHEEZING
     Dosage: AS REQUIRED
     Route: 055
  2. VENTOLIN [Concomitant]
     Active Substance: ALBUTEROL SULFATE
     Indication: DYSPNOEA
     Dosage: AS REQUIRED
     Route: 055
  3. SYMBICORT [Suspect]
     Active Substance: BUDESONIDE\FORMOTEROL FUMARATE DIHYDRATE
     Indication: CHRONIC OBSTRUCTIVE PULMONARY DISEASE
     Dosage: 160/4.5 MCG, 2 PUFFS BID
     Route: 055

REACTIONS (13)
  - Angiopathy [Unknown]
  - Back injury [Unknown]
  - Weight fluctuation [Unknown]
  - Wheezing [Unknown]
  - Weight decreased [Unknown]
  - Neck injury [Unknown]
  - Weight increased [Unknown]
  - Appetite disorder [Unknown]
  - Decreased appetite [Unknown]
  - Device malfunction [Unknown]
  - Malaise [Unknown]
  - Wrong technique in device usage process [Unknown]
  - Dyspnoea [Unknown]
